FAERS Safety Report 6160420-4 (Version None)
Quarter: 2009Q2

REPORT INFORMATION
  Report Type: 
  Country: None (occurrence: None)
  Receive Date: 20090420
  Receipt Date: 20090416
  Transmission Date: 20091009
  Serious: Yes (Hospitalization)
  Sender: FDA-Public Use
  Company Number: NL-JNJFOC-20090404346

PATIENT
  Sex: Female
  Weight: 50 kg

DRUGS (4)
  1. TOPAMAX [Suspect]
     Indication: NIGHTMARE
     Route: 048
  2. LORAZEPAM [Suspect]
     Indication: INSOMNIA
     Route: 048
  3. CAMPRAL [Concomitant]
  4. DIAZEPAM [Concomitant]

REACTIONS (3)
  - ALCOHOL INTERACTION [None]
  - OVERDOSE [None]
  - SUICIDE ATTEMPT [None]
